FAERS Safety Report 4442281-4 (Version None)
Quarter: 2004Q3

REPORT INFORMATION
  Report Type: 
  Country: None (occurrence: None)
  Receive Date: 20040903
  Receipt Date: 20040412
  Transmission Date: 20050211
  Serious: Yes (Other)
  Sender: FDA-Public Use
  Company Number: 2004UW07274

PATIENT
  Age: 66 Year
  Sex: Female
  Weight: 83.9154 kg

DRUGS (12)
  1. CRESTOR [Suspect]
     Indication: LOW DENSITY LIPOPROTEIN INCREASED
     Dosage: 10 MG DAILY PO
     Route: 048
     Dates: start: 20040401
  2. DIOVAN [Concomitant]
  3. GLUCOPHAGE [Concomitant]
  4. CELEBREX [Concomitant]
  5. CLONIDINE HCL [Concomitant]
  6. ECOTRIN [Concomitant]
  7. NIACIN [Concomitant]
  8. PROTONIX [Concomitant]
  9. ACTONEL [Concomitant]
  10. ASTELIN [Concomitant]
  11. ATARAX [Concomitant]
  12. BETAMETHASONE [Concomitant]

REACTIONS (2)
  - BURNING SENSATION [None]
  - PAIN IN EXTREMITY [None]
